FAERS Safety Report 4423745-6 (Version None)
Quarter: 2004Q3

REPORT INFORMATION
  Report Type: 
  Country: None (occurrence: None)
  Receive Date: 20040806
  Receipt Date: 20040723
  Transmission Date: 20050211
  Serious: Yes (Death)
  Sender: FDA-Public Use
  Company Number: 2003AP00923

PATIENT
  Age: 40 Year
  Sex: Female
  Weight: 85 kg

DRUGS (3)
  1. SEROQUEL [Suspect]
     Indication: PSYCHOTIC DISORDER
     Dosage: 700 MG DAILY PO
     Route: 048
  2. CIPRAMIL [Suspect]
     Indication: DEPRESSION
     Dosage: 40 MG DAILY PO
     Route: 048
  3. ERYTHROMYCIN [Concomitant]

REACTIONS (8)
  - ACCIDENT [None]
  - ALCOHOL USE [None]
  - CRYING [None]
  - DEPRESSED MOOD [None]
  - FALL [None]
  - INJURY [None]
  - INTENTIONAL OVERDOSE [None]
  - ORAL INFECTION [None]
